FAERS Safety Report 17532414 (Version 1)
Quarter: 2020Q1

REPORT INFORMATION
  Report Type: Spontaneous
  Country: US (occurrence: US)
  Receive Date: 20200311
  Receipt Date: 20200311
  Transmission Date: 20200409
  Serious: No
  Sender: FDA-Public Use
  Company Number: None

PATIENT
  Age: 31 Year
  Sex: Female
  Weight: 76.2 kg

DRUGS (1)
  1. MIRENA [Suspect]
     Active Substance: LEVONORGESTREL
     Dates: start: 20180216, end: 20200309

REACTIONS (7)
  - Screaming [None]
  - Muscle spasms [None]
  - Complication of device removal [None]
  - Mood swings [None]
  - Pelvic pain [None]
  - Crying [None]
  - Nausea [None]

NARRATIVE: CASE EVENT DATE: 20200309
